FAERS Safety Report 19776611 (Version 2)
Quarter: 2021Q3

REPORT INFORMATION
  Report Type: Spontaneous
  Country: CA (occurrence: CA)
  Receive Date: 20210901
  Receipt Date: 20210916
  Transmission Date: 20211014
  Serious: Yes (Hospitalization, Other)
  Sender: FDA-Public Use
  Company Number: CA-PFIZER INC-2021359873

PATIENT
  Age: 89 Year
  Sex: Female
  Weight: 64.85 kg

DRUGS (1)
  1. XELJANZ XR [Suspect]
     Active Substance: TOFACITINIB CITRATE
     Indication: RHEUMATOID ARTHRITIS
     Dosage: 11 MG, 1X/DAY
     Route: 048
     Dates: start: 20201224, end: 20210804

REACTIONS (12)
  - Disorientation [Unknown]
  - Lung neoplasm malignant [Unknown]
  - Stress [Unknown]
  - Pulmonary mass [Unknown]
  - Weight decreased [Unknown]
  - Night blindness [Not Recovered/Not Resolved]
  - Malaise [Unknown]
  - Macular degeneration [Not Recovered/Not Resolved]
  - Fall [Recovering/Resolving]
  - Joint injury [Recovering/Resolving]
  - Hyponatraemia [Unknown]
  - Pneumonia [Recovering/Resolving]

NARRATIVE: CASE EVENT DATE: 2021
